FAERS Safety Report 23934554 (Version 1)
Quarter: 2024Q2

REPORT INFORMATION
  Report Type: Spontaneous
  Country: US (occurrence: US)
  Receive Date: 20240603
  Receipt Date: 20240603
  Transmission Date: 20240715
  Serious: No
  Sender: FDA-Public Use
  Company Number: US-BRISTOL-MYERS SQUIBB COMPANY-2024-088704

PATIENT
  Age: 75 Year
  Sex: Female

DRUGS (1)
  1. LENALIDOMIDE [Suspect]
     Active Substance: LENALIDOMIDE
     Indication: Physical examination
     Dosage: TAKE 1 CAPSULE WHOLE BY MOUTH WITH GLASS OF WATER EVERY DAY FOR 21 DAYS, 7 DAYS OFF IN 28 DAYCYCLE
     Route: 048

REACTIONS (1)
  - Off label use [Unknown]
